FAERS Safety Report 10181533 (Version 1)
Quarter: 2014Q2

REPORT INFORMATION
  Report Type: Spontaneous
  Country: US (occurrence: US)
  Receive Date: 20140519
  Receipt Date: 20140519
  Transmission Date: 20141212
  Serious: No
  Sender: FDA-Public Use
  Company Number: US-PFIZER INC-2014135974

PATIENT
  Age: 56 Year
  Sex: Female

DRUGS (1)
  1. CHANTIX [Suspect]
     Dosage: UNK, 2X/DAY
     Dates: start: 20140109

REACTIONS (3)
  - Abnormal dreams [Unknown]
  - Fatigue [Unknown]
  - Feeling abnormal [Unknown]
